FAERS Safety Report 4617913-8 (Version None)
Quarter: 2005Q1

REPORT INFORMATION
  Report Type: 
  Country: None (occurrence: None)
  Receive Date: 20050324
  Receipt Date: 20050216
  Transmission Date: 20050727
  Serious: Yes (Other)
  Sender: FDA-Public Use
  Company Number: PHEH2005US02146

PATIENT
  Age: 63 Year
  Sex: Female

DRUGS (4)
  1. TRILEPTAL [Suspect]
     Indication: BIPOLAR DISORDER
     Dosage: 300 MG, QD
     Dates: start: 20050101
  2. THIORIDAZINE HCL [Concomitant]
  3. KLONOPIN [Concomitant]
  4. SYNTHROID [Concomitant]

REACTIONS (2)
  - MEASLES [None]
  - URTICARIA [None]
